FAERS Safety Report 20897062 (Version 2)
Quarter: 2022Q2

REPORT INFORMATION
  Report Type: Spontaneous
  Country: JP (occurrence: JP)
  Receive Date: 20220531
  Receipt Date: 20220615
  Transmission Date: 20220721
  Serious: Yes (Other)
  Sender: FDA-Public Use
  Company Number: JP-TEVA-2022-JP-2041175

PATIENT
  Age: 23 Year
  Sex: Male

DRUGS (2)
  1. SILDENAFIL [Suspect]
     Active Substance: SILDENAFIL
     Indication: Intentional overdose
     Dosage: 1 DOSAGE FORMS DAILY;
     Route: 048
  2. SILDENAFIL [Suspect]
     Active Substance: SILDENAFIL
     Indication: Suicide attempt
     Dosage: TOTAL 2000MG (OVERDOSE)
     Route: 048

REACTIONS (7)
  - Intentional overdose [Unknown]
  - Retinal toxicity [Recovering/Resolving]
  - Colour blindness acquired [Recovering/Resolving]
  - Photophobia [Recovering/Resolving]
  - Visual field defect [Recovering/Resolving]
  - Vision blurred [Recovering/Resolving]
  - Loss of visual contrast sensitivity [Recovering/Resolving]
